FAERS Safety Report 18241812 (Version 1)
Quarter: 2020Q3

REPORT INFORMATION
  Report Type: Spontaneous
  Country: US (occurrence: US)
  Receive Date: 20200904
  Receipt Date: 20200904
  Transmission Date: 20201103
  Serious: No
  Sender: FDA-Public Use
  Company Number: None

PATIENT
  Age: 63 Year
  Sex: Male

DRUGS (1)
  1. SPRYCEL [Suspect]
     Active Substance: DASATINIB
     Route: 048
     Dates: start: 202001, end: 202007

REACTIONS (3)
  - Fluid retention [None]
  - Hypertension [None]
  - Heart rate increased [None]

NARRATIVE: CASE EVENT DATE: 20200721
